FAERS Safety Report 7280161-X (Version None)
Quarter: 2011Q1

REPORT INFORMATION
  Report Type: 
  Country: None (occurrence: None)
  Receive Date: 20110208
  Receipt Date: 20110127
  Transmission Date: 20110831
  Serious: Yes (Life-Threatening, Other)
  Sender: FDA-Public Use
  Company Number: JP-SANOFI-AVENTIS-2011SA005411

PATIENT
  Age: 68 Year
  Sex: Male

DRUGS (12)
  1. ELPLAT [Suspect]
     Route: 042
     Dates: start: 20101028, end: 20101028
  2. AVASTIN [Suspect]
     Indication: LARGE INTESTINE CARCINOMA
     Route: 042
     Dates: start: 20101118, end: 20101118
  3. XELODA [Suspect]
     Indication: LARGE INTESTINE CARCINOMA
     Route: 048
     Dates: start: 20100617, end: 20101213
  4. ELPLAT [Suspect]
     Indication: LARGE INTESTINE CARCINOMA
     Route: 042
     Dates: start: 20100617, end: 20100617
  5. CLINORIL [Suspect]
     Route: 048
  6. NOVAMIN [Concomitant]
     Dates: start: 20101208, end: 20101213
  7. AMARYL [Concomitant]
     Dates: start: 20100610, end: 20101213
  8. OXINORM [Suspect]
     Route: 048
     Dates: start: 20101208, end: 20101213
  9. LOXOPROFEN SODIUM [Concomitant]
     Dates: start: 20101125, end: 20101207
  10. AVASTIN [Suspect]
     Route: 042
     Dates: start: 20101210, end: 20101210
  11. OXYCONTIN [Suspect]
     Route: 048
     Dates: start: 20101208, end: 20101213
  12. PYDOXAL [Concomitant]
     Dates: start: 20100805, end: 20101213

REACTIONS (14)
  - SEPSIS [None]
  - DISSEMINATED INTRAVASCULAR COAGULATION [None]
  - PROCTALGIA [None]
  - NERVE INJURY [None]
  - HYPOTENSION [None]
  - PALMAR-PLANTAR ERYTHRODYSAESTHESIA SYNDROME [None]
  - RECTAL PERFORATION [None]
  - PYREXIA [None]
  - GASTRITIS [None]
  - CONSTIPATION [None]
  - URTICARIA [None]
  - NEUROPATHY PERIPHERAL [None]
  - ALTERED STATE OF CONSCIOUSNESS [None]
  - PLATELET COUNT DECREASED [None]
